FAERS Safety Report 15825124 (Version 3)
Quarter: 2019Q3

REPORT INFORMATION
  Report Type: Spontaneous
  Country: US (occurrence: US)
  Receive Date: 20190115
  Receipt Date: 20190813
  Transmission Date: 20191004
  Serious: No
  Sender: FDA-Public Use
  Company Number: US-PFIZER INC-2019017869

PATIENT
  Age: 73 Year
  Sex: Female

DRUGS (1)
  1. VENLAFAXINE HCL [Suspect]
     Active Substance: VENLAFAXINE HYDROCHLORIDE
     Dosage: 75 MG (150 MG CUT IN HALF)

REACTIONS (4)
  - Wrong technique in product usage process [Unknown]
  - Abdominal pain upper [Unknown]
  - Drug ineffective [Unknown]
  - Intentional product misuse [Unknown]
